FAERS Safety Report 4683143-7 (Version None)
Quarter: 2005Q2

REPORT INFORMATION
  Report Type: 
  Country: None (occurrence: None)
  Receive Date: 20050602
  Receipt Date: 20050331
  Transmission Date: 20051028
  Serious: No
  Sender: FDA-Public Use
  Company Number: USA050494602

PATIENT
  Age: 74 Year
  Sex: Female

DRUGS (6)
  1. CYMBALTA [Suspect]
     Indication: FIBROMYALGIA
     Dosage: 30 MG DAY
     Dates: start: 20050330
  2. PREDNISONE [Concomitant]
  3. AVALIDE [Concomitant]
  4. TIMOLOL MALEATE [Concomitant]
  5. PROPOXYPHENE HCL AND ACETAMINOPHEN [Concomitant]
  6. DARVON [Concomitant]

REACTIONS (7)
  - BLOOD PRESSURE INCREASED [None]
  - EAR DISCOMFORT [None]
  - EAR PAIN [None]
  - FEELING JITTERY [None]
  - INSOMNIA [None]
  - SINUSITIS [None]
  - TONGUE DISORDER [None]
